FAERS Safety Report 25339999 (Version 2)
Quarter: 2025Q2

REPORT INFORMATION
  Report Type: Report from Study
  Country: CA (occurrence: CA)
  Receive Date: 20250521
  Receipt Date: 20250605
  Transmission Date: 20250717
  Serious: Yes (Other)
  Sender: ABBVIE
  Company Number: CA-ABBVIE-6289191

PATIENT
  Age: 31 Year
  Sex: Female

DRUGS (1)
  1. HUMIRA [Suspect]
     Active Substance: ADALIMUMAB
     Indication: Ankylosing spondylitis
     Route: 058
     Dates: start: 2018, end: 202504

REACTIONS (5)
  - Tuberculin test positive [Not Recovered/Not Resolved]
  - Disseminated tuberculosis [Unknown]
  - Patella fracture [Unknown]
  - Uterine dilation and curettage [Unknown]
  - Uterine polyp [Unknown]

NARRATIVE: CASE EVENT DATE: 20190101
